FAERS Safety Report 6316174-1 (Version None)
Quarter: 2009Q3

REPORT INFORMATION
  Report Type: 
  Country: None (occurrence: None)
  Receive Date: 20090820
  Receipt Date: 20090811
  Transmission Date: 20100115
  Serious: Yes (Other)
  Sender: FDA-Public Use
  Company Number: KE-ASTRAZENECA-2009SE08091

PATIENT
  Age: 7680 Day
  Sex: Female
  Weight: 60 kg

DRUGS (3)
  1. MERONEM [Suspect]
     Indication: WOUND INFECTION BACTERIAL
     Route: 042
     Dates: start: 20090708, end: 20090708
  2. BACQUIRE [Concomitant]
     Route: 042
  3. BACQUIRE [Concomitant]
     Route: 042
     Dates: start: 20090604, end: 20090703

REACTIONS (4)
  - MALAISE [None]
  - PRURITUS [None]
  - URTICARIA [None]
  - VOMITING [None]
